FAERS Safety Report 9366314 (Version 1)
Quarter: 2013Q2

REPORT INFORMATION
  Report Type: Spontaneous
  Country: US (occurrence: US)
  Receive Date: 20130625
  Receipt Date: 20130625
  Transmission Date: 20140414
  Serious: No
  Sender: FDA-Public Use
  Company Number: US-GLAXOSMITHKLINE-A0990952A

PATIENT
  Age: 54 Year
  Sex: Female

DRUGS (1)
  1. VERAMYST [Suspect]
     Indication: PRODUCT USED FOR UNKNOWN INDICATION
     Dosage: 27.5MG UNKNOWN
     Route: 065
     Dates: start: 20120809

REACTIONS (1)
  - Dizziness [Unknown]
